FAERS Safety Report 8161973-7 (Version None)
Quarter: 2012Q1

REPORT INFORMATION
  Report Type: 
  Country: None (occurrence: None)
  Receive Date: 20120224
  Receipt Date: 20120220
  Transmission Date: 20120608
  Serious: Yes (Other)
  Sender: FDA-Public Use
  Company Number: US-PFIZER INC-2011062950

PATIENT
  Sex: Female
  Weight: 83 kg

DRUGS (5)
  1. CHANTIX [Suspect]
     Dosage: 1 MG, 2X/DAY
     Route: 048
     Dates: start: 20110101, end: 20110101
  2. CHANTIX [Suspect]
     Indication: SMOKING CESSATION THERAPY
     Dosage: 0.5 MG, 1X/DAY
     Route: 048
     Dates: start: 20110318, end: 20110301
  3. CHANTIX [Suspect]
     Dosage: UNK
     Route: 048
     Dates: start: 20110101, end: 20110101
  4. CHANTIX [Suspect]
     Dosage: 0.5 MG, 2X/DAY
     Route: 048
     Dates: start: 20110301, end: 20110101
  5. CHANTIX [Suspect]
     Dosage: UNK
     Route: 048
     Dates: start: 20120213

REACTIONS (21)
  - DYSPNOEA [None]
  - HALLUCINATION [None]
  - DIARRHOEA [None]
  - NERVOUS SYSTEM DISORDER [None]
  - SOCIAL AVOIDANT BEHAVIOUR [None]
  - INFLUENZA [None]
  - RESTLESSNESS [None]
  - DISTURBANCE IN ATTENTION [None]
  - ANXIETY [None]
  - MEDICAL DEVICE COMPLICATION [None]
  - INSOMNIA [None]
  - THINKING ABNORMAL [None]
  - DRUG WITHDRAWAL SYNDROME [None]
  - DRUG INEFFECTIVE [None]
  - GAIT DISTURBANCE [None]
  - PAIN [None]
  - NAUSEA [None]
  - VOMITING [None]
  - MALAISE [None]
  - DYSGEUSIA [None]
  - IRRITABILITY [None]
